FAERS Safety Report 20925808 (Version 3)
Quarter: 2022Q3

REPORT INFORMATION
  Report Type: Spontaneous
  Country: US (occurrence: None)
  Receive Date: 20220607
  Receipt Date: 20220730
  Transmission Date: 20221026
  Serious: No
  Sender: FDA-Public Use
  Company Number: 2022A204834

PATIENT
  Age: 1010 Month
  Sex: Female
  Weight: 65.8 kg

DRUGS (1)
  1. SYMBICORT [Suspect]
     Active Substance: BUDESONIDE\FORMOTEROL FUMARATE DIHYDRATE
     Indication: Asthma
     Dosage: DOSE:160/4.5MCG 2 PUFFS FREQUENCY: TWICE DAILY
     Route: 055

REACTIONS (7)
  - Drug ineffective [Recovered/Resolved]
  - Device use issue [Recovered/Resolved]
  - Product dose omission issue [Recovered/Resolved]
  - Wrong technique in device usage process [Recovered/Resolved]
  - Device delivery system issue [Unknown]
  - Cataract [Unknown]
  - Visual impairment [Not Recovered/Not Resolved]

NARRATIVE: CASE EVENT DATE: 20220501
